FAERS Safety Report 22331628 (Version 2)
Quarter: 2023Q2

REPORT INFORMATION
  Report Type: Spontaneous
  Country: FR (occurrence: FR)
  Receive Date: 20230517
  Receipt Date: 20230627
  Transmission Date: 20230722
  Serious: Yes (Life-Threatening, Hospitalization)
  Sender: FDA-Public Use
  Company Number: FR-BAYER-2023A065931

PATIENT
  Age: 65 Year
  Sex: Female
  Weight: 98 kg

DRUGS (1)
  1. APROTININ [Suspect]
     Active Substance: APROTININ
     Indication: Ventricular assist device insertion
     Dosage: HALF-DOSE
     Route: 042
     Dates: start: 20221021, end: 20221021

REACTIONS (2)
  - Peripheral artery thrombosis [Recovered/Resolved]
  - Product use in unapproved indication [Recovered/Resolved]

NARRATIVE: CASE EVENT DATE: 20221021
